FAERS Safety Report 4590714-5 (Version None)
Quarter: 2005Q1

REPORT INFORMATION
  Report Type: 
  Country: None (occurrence: None)
  Receive Date: 20050224
  Receipt Date: 20030605
  Transmission Date: 20050727
  Serious: Yes (Hospitalization, Other)
  Sender: FDA-Public Use
  Company Number: US-MERCK-0306USA00749

PATIENT
  Age: 65 Year
  Sex: Male
  Weight: 103 kg

DRUGS (9)
  1. VIOXX [Suspect]
     Route: 048
     Dates: end: 20010207
  2. VIOXX [Suspect]
     Route: 065
  3. LEVOTHYROXINE SODIUM [Concomitant]
     Route: 065
  4. CARDIZEM [Concomitant]
     Route: 065
  5. PRILOSEC [Concomitant]
     Route: 065
  6. LIPITOR [Concomitant]
     Route: 065
  7. TRIAMTERENE [Concomitant]
     Route: 065
     Dates: end: 20010207
  8. PLAVIX [Concomitant]
     Route: 065
  9. ASPIRIN [Concomitant]
     Route: 065

REACTIONS (38)
  - ADENOMATOUS POLYPOSIS COLI [None]
  - ADVERSE EVENT [None]
  - ANGINA PECTORIS [None]
  - ARTERIOSCLEROSIS [None]
  - ARTHRALGIA [None]
  - BENIGN PROSTATIC HYPERPLASIA [None]
  - BLOOD CHOLESTEROL INCREASED [None]
  - BLOOD POTASSIUM DECREASED [None]
  - CATARACT [None]
  - CEREBROVASCULAR ACCIDENT [None]
  - CLAUSTROPHOBIA [None]
  - COLONIC POLYP [None]
  - CONJUNCTIVAL HAEMORRHAGE [None]
  - CONVULSION [None]
  - DRUG ERUPTION [None]
  - DYSPNOEA [None]
  - ELECTROCARDIOGRAM ST-T CHANGE [None]
  - ENCEPHALOMALACIA [None]
  - EYE PAIN [None]
  - GASTROOESOPHAGEAL REFLUX DISEASE [None]
  - HAEMATURIA [None]
  - HAEMORRHOIDS [None]
  - HYDRONEPHROSIS [None]
  - HYPERTENSION [None]
  - HYPERTONIC BLADDER [None]
  - NEURODERMATITIS [None]
  - NOCTURIA [None]
  - NODULE [None]
  - PAIN IN EXTREMITY [None]
  - PARALYSIS [None]
  - PENILE VEIN THROMBOSIS [None]
  - PNEUMONIA [None]
  - POST PROCEDURAL PAIN [None]
  - PROTEINURIA [None]
  - RASH [None]
  - RECTAL HAEMORRHAGE [None]
  - VERTIGO [None]
  - VITREOUS DETACHMENT [None]
